FAERS Safety Report 7330673-5 (Version None)
Quarter: 2011Q1

REPORT INFORMATION
  Report Type: 
  Country: None (occurrence: None)
  Receive Date: 20110225
  Receipt Date: 20110225
  Transmission Date: 20110831
  Serious: Yes (Hospitalization)
  Sender: FDA-Public Use
  Company Number: None

PATIENT
  Age: 51 Year
  Sex: Female
  Weight: 59 kg

DRUGS (7)
  1. OXYCODONE [Concomitant]
  2. ZOFRAN [Concomitant]
  3. COMBIVENT [Concomitant]
  4. PROVENTIL [Concomitant]
  5. COMPAZINE [Concomitant]
  6. CELEXA [Concomitant]
  7. PAZOPANIB 800MG (GLAX SMITH KLINE) [Suspect]
     Indication: LUNG NEOPLASM MALIGNANT
     Dosage: 800MG ORAL DAILY
     Route: 048
     Dates: start: 20110124, end: 20110212

REACTIONS (3)
  - DYSPNOEA [None]
  - PRODUCTIVE COUGH [None]
  - MENTAL STATUS CHANGES [None]
